FAERS Safety Report 5023014-X (Version None)
Quarter: 2006Q2

REPORT INFORMATION
  Report Type: 
  Country: None (occurrence: None)
  Receive Date: 20060426
  Receipt Date: 20060111
  Transmission Date: 20061013
  Serious: Yes (Other)
  Sender: FDA-Public Use
  Company Number: 2006006380

PATIENT
  Age: 79 Year
  Sex: Male

DRUGS (16)
  1. LYRICA [Suspect]
     Indication: NEUROPATHY
     Dosage: 150 MG (75 MG,2 IN 1 D)
     Dates: start: 20060106
  2. DIOVAN [Concomitant]
  3. DIAZEPAM [Concomitant]
  4. NITROQUICK (GLYCERYL TRINITRATE) [Concomitant]
  5. PLAVIX [Concomitant]
  6. FLOMAX [Concomitant]
  7. FUROSEMIDE [Concomitant]
  8. METOPROLOL SUCCINATE [Concomitant]
  9. ISOSORBIDE (ISOSORBIDE) [Concomitant]
  10. ZOCOR [Concomitant]
  11. ASPIRIN [Concomitant]
  12. CO-Q-10 (UBIDECARENONE) [Concomitant]
  13. GLUCOSAMINE W/CHONDROITIN SULFATES (ASCORBIC ACID, CHONDROITIN SULFATE [Concomitant]
  14. SAW PALMETTO (SAW PALMETTO) [Concomitant]
  15. VITAMIN C (VITAMIN C) [Concomitant]
  16. VITAMIN E [Concomitant]

REACTIONS (2)
  - HYPOTENSION [None]
  - LOSS OF CONSCIOUSNESS [None]
